FAERS Safety Report 10409724 (Version 7)
Quarter: 2015Q2

REPORT INFORMATION
  Report Type: Report from Study
  Country: US (occurrence: US)
  Receive Date: 20140826
  Receipt Date: 20150409
  Transmission Date: 20150821
  Serious: Yes (Hospitalization)
  Sender: FDA-Public Use
  Company Number: US-ACTELION-A-NJ2014-104055

PATIENT
  Age: 85 Year
  Sex: Male

DRUGS (1)
  1. MACITENTAN [Suspect]
     Active Substance: MACITENTAN
     Indication: PULMONARY ARTERIAL HYPERTENSION
     Dosage: 10 MG, QD
     Route: 048
     Dates: start: 20140603

REACTIONS (5)
  - Lumbar vertebral fracture [Unknown]
  - Arterial injury [Unknown]
  - Suture insertion [Unknown]
  - Limb injury [Unknown]
  - Fall [Unknown]
